FAERS Safety Report 11445164 (Version 1)
Quarter: 2015Q3

REPORT INFORMATION
  Report Type: Spontaneous
  Country: CA (occurrence: CA)
  Receive Date: 20150902
  Receipt Date: 20150902
  Transmission Date: 20151125
  Serious: Yes (Death)
  Sender: FDA-Public Use
  Company Number: CA-TEVA-590554ACC

PATIENT
  Age: 49 Year
  Sex: Female

DRUGS (8)
  1. ETHANOL [Concomitant]
     Active Substance: ALCOHOL
  2. DIAZEPAM. [Concomitant]
     Active Substance: DIAZEPAM
  3. AMITRIPTYLINE [Suspect]
     Active Substance: AMITRIPTYLINE
     Indication: PRODUCT USED FOR UNKNOWN INDICATION
     Route: 065
  4. NORDIAZEPAM [Concomitant]
     Active Substance: NORDAZEPAM
  5. VENLAFAXINE XR [Suspect]
     Active Substance: VENLAFAXINE HYDROCHLORIDE
     Indication: PRODUCT USED FOR UNKNOWN INDICATION
     Route: 065
  6. NORTRIPTYLINE [Concomitant]
     Active Substance: NORTRIPTYLINE
  7. O-DESMETHYLVENLAFAXINE [Concomitant]
     Active Substance: DESVENLAFAXINE
  8. 7-AMINOCLONAZEPAM [Concomitant]
     Active Substance: CLONAZEPAM

REACTIONS (1)
  - Malaise [Fatal]
